FAERS Safety Report 5239728-2 (Version None)
Quarter: 2007Q1

REPORT INFORMATION
  Report Type: 
  Country: None (occurrence: None)
  Receive Date: 20070216
  Receipt Date: 20070207
  Transmission Date: 20070707
  Serious: Yes (Other)
  Sender: FDA-Public Use
  Company Number: CZ-ROCHE-480783

PATIENT
  Age: 61 Year
  Sex: Male

DRUGS (2)
  1. ROFERON-A [Suspect]
     Indication: MALIGNANT MELANOMA
     Dosage: INDUCTION PHASE OF THERAPY
     Route: 065
     Dates: start: 20060814
  2. ROFERON-A [Suspect]
     Route: 065

REACTIONS (2)
  - HEARING IMPAIRED [None]
  - TINNITUS [None]
